FAERS Safety Report 5989614-5 (Version None)
Quarter: 2008Q4

REPORT INFORMATION
  Report Type: 
  Country: None (occurrence: None)
  Receive Date: 20081205
  Receipt Date: 20081130
  Transmission Date: 20090506
  Serious: Yes (Other)
  Sender: FDA-Public Use
  Company Number: 2008SP024305

PATIENT
  Age: 43 Year
  Sex: Female

DRUGS (2)
  1. PEG-INTRON [Suspect]
     Indication: HEPATITIS C
     Dosage: SC
     Route: 058
     Dates: start: 20081011
  2. RIBAVIRIN [Suspect]
     Indication: HEPATITIS C
     Dosage: PO
     Route: 048
     Dates: start: 20081011

REACTIONS (11)
  - ABDOMINAL PAIN UPPER [None]
  - ANOREXIA [None]
  - ASTHENIA [None]
  - BRONCHIAL HYPERREACTIVITY [None]
  - DEHYDRATION [None]
  - DYSPHONIA [None]
  - HAEMATOCHEZIA [None]
  - HAEMORRHAGE [None]
  - INFLUENZA [None]
  - PRODUCTIVE COUGH [None]
  - VIRAL INFECTION [None]
